FAERS Safety Report 5456140-1 (Version None)
Quarter: 2007Q3

REPORT INFORMATION
  Report Type: 
  Country: None (occurrence: None)
  Receive Date: 20070918
  Receipt Date: 20061109
  Transmission Date: 20080115
  Serious: No
  Sender: FDA-Public Use
  Company Number: US-ASTRAZENECA-2006UW23416

PATIENT
  Age: 67 Year
  Sex: Female
  Weight: 49.4 kg

DRUGS (5)
  1. SEROQUEL [Suspect]
     Indication: BIPOLAR DISORDER
     Route: 048
  2. DEPAKOTE [Concomitant]
  3. LISINOPRIL [Concomitant]
  4. MIRAPEX [Concomitant]
  5. NORCO [Concomitant]

REACTIONS (1)
  - MALAISE [None]
